FAERS Safety Report 7756442-X (Version None)
Quarter: 2011Q3

REPORT INFORMATION
  Report Type: 
  Country: None (occurrence: None)
  Receive Date: 20110901
  Receipt Date: 20110819
  Transmission Date: 20111222
  Serious: Yes (Hospitalization)
  Sender: FDA-Public Use
  Company Number: 2011PROUSA00594

PATIENT
  Age: 69 Year
  Sex: Male
  Weight: 102.9 kg

DRUGS (14)
  1. PLAVIX [Concomitant]
  2. E VITAMIN E (TOCOPHEROL) [Concomitant]
  3. OMEPRAZOLE [Concomitant]
  4. PREDELTIN (PREDNISONE) [Concomitant]
  5. COZAAR [Concomitant]
  6. PERCOCET [Concomitant]
  7. PROVENGE [Suspect]
     Indication: PROSTATE CANCER METASTATIC
     Dosage: 250 ML, SINGLE, INTRAVENOUS
     Route: 042
     Dates: start: 20110811, end: 20110811
  8. NITROGLYCERIN [Concomitant]
  9. FUROSEMIDE [Concomitant]
  10. KLOR-CON [Concomitant]
  11. SIMVASTATIN [Concomitant]
  12. FISH OIL [Concomitant]
  13. CENTRUM SILVER (ASCORBIC ACID, CALCIUM, MINERALS NOS, RETINOL, TOCOPHE [Concomitant]
  14. DOXAZOSIN MESYLATE (DOXAZOSIN MESILATE) [Concomitant]

REACTIONS (14)
  - TUMOUR LYSIS SYNDROME [None]
  - DISEASE PROGRESSION [None]
  - ANAEMIA OF CHRONIC DISEASE [None]
  - FATIGUE [None]
  - DECREASED APPETITE [None]
  - RENAL FAILURE ACUTE [None]
  - URETERIC OBSTRUCTION [None]
  - METASTASES TO LYMPH NODES [None]
  - BACK PAIN [None]
  - OEDEMA PERIPHERAL [None]
  - HYPERURICAEMIA [None]
  - PLATELET COUNT DECREASED [None]
  - HAEMATURIA [None]
  - HYDRONEPHROSIS [None]
